FAERS Safety Report 14143760 (Version 1)
Quarter: 2017Q4

REPORT INFORMATION
  Report Type: Spontaneous
  Country: NL (occurrence: NL)
  Receive Date: 20171031
  Receipt Date: 20171031
  Transmission Date: 20180321
  Serious: Yes (Death, Hospitalization)
  Sender: FDA-Public Use
  Company Number: NL-ENDO PHARMACEUTICALS INC-2017-005730

PATIENT
  Age: 35 Year
  Sex: Female

DRUGS (3)
  1. CLOFAZIMINE [Concomitant]
     Active Substance: CLOFAZIMINE
     Indication: LEPROSY
     Dosage: 50 MG, DAILY
     Route: 065
  2. RIFAMPICIN [Concomitant]
     Active Substance: RIFAMPIN
     Indication: LEPROSY
     Dosage: 600 MG, MONTHLY
     Route: 065
  3. DAPSONE. [Suspect]
     Active Substance: DAPSONE
     Indication: LEPROSY
     Dosage: 100 MG, DAILY
     Route: 065

REACTIONS (2)
  - Drug reaction with eosinophilia and systemic symptoms [Recovered/Resolved]
  - Eosinophilic myocarditis [Fatal]
